FAERS Safety Report 6033344-0 (Version None)
Quarter: 2009Q1

REPORT INFORMATION
  Report Type: 
  Country: None (occurrence: None)
  Receive Date: 20090105
  Receipt Date: 20080821
  Transmission Date: 20090719
  Serious: Yes (Other)
  Sender: FDA-Public Use
  Company Number: US-001781

PATIENT
  Age: 60 Year
  Sex: Female

DRUGS (12)
  1. MULTIHANCE [Suspect]
     Indication: NUCLEAR MAGNETIC RESONANCE IMAGING
     Dosage: INTRAVENOUS (NOT OTHERWISE SPECIFIED)
     Route: 042
  2. MULTIHANCE [Suspect]
     Indication: PERIPHERAL VASCULAR DISORDER
     Dosage: INTRAVENOUS (NOT OTHERWISE SPECIFIED)
     Route: 042
  3. MAGNEVIST [Suspect]
     Indication: NUCLEAR MAGNETIC RESONANCE IMAGING
     Dosage: INTRAVENOUS (NOT OTHERWISE SPECIFIED)
     Route: 042
  4. MAGNEVIST [Suspect]
     Indication: PERIPHERAL VASCULAR DISORDER
     Dosage: INTRAVENOUS (NOT OTHERWISE SPECIFIED)
     Route: 042
  5. HYDRALAZINE HCL [Concomitant]
  6. ISOSORBIDE DINITRATE [Concomitant]
  7. AMLODIPINE [Concomitant]
  8. ASPIRIN [Concomitant]
  9. FUROSEMIDE (FUROSEMIDE) [Concomitant]
  10. GABAPENTIN [Concomitant]
  11. INSULIN (INSULIN) [Concomitant]
  12. CLONIDINE [Concomitant]

REACTIONS (1)
  - NEPHROGENIC SYSTEMIC FIBROSIS [None]
